FAERS Safety Report 19894169 (Version 7)
Quarter: 2022Q4

REPORT INFORMATION
  Report Type: Report from Study
  Country: MX (occurrence: MX)
  Receive Date: 20210928
  Receipt Date: 20221031
  Transmission Date: 20230113
  Serious: Yes (Disabling, Other)
  Sender: FDA-Public Use
  Company Number: NVSC2021MX219623

PATIENT
  Age: 39 Year
  Sex: Male
  Weight: 63 kg

DRUGS (4)
  1. GILENYA [Suspect]
     Active Substance: FINGOLIMOD HYDROCHLORIDE
     Indication: Multiple sclerosis
     Dosage: 0.5 MG, QD,
     Route: 048
     Dates: start: 20210115, end: 202210
  2. GILENYA [Suspect]
     Active Substance: FINGOLIMOD HYDROCHLORIDE
     Dosage: 0.5 MG, QD, BY MOUTH
     Route: 048
     Dates: start: 20221005
  3. GABAPENTIN [Concomitant]
     Active Substance: GABAPENTIN
     Indication: Limb discomfort
     Dosage: 1 DF, Q12H
     Route: 048
     Dates: start: 2019
  4. CELECOXIB [Concomitant]
     Active Substance: CELECOXIB
     Indication: Limb discomfort
     Dosage: 1 DF, Q12H (AT NIGHT)
     Route: 048
     Dates: start: 2019

REACTIONS (23)
  - Movement disorder [Recovered/Resolved]
  - Pain in extremity [Recovered/Resolved]
  - Haemorrhage [Unknown]
  - Loss of consciousness [Unknown]
  - Optic nerve injury [Recovering/Resolving]
  - Vision blurred [Recovering/Resolving]
  - Myelopathy [Not Recovered/Not Resolved]
  - Bone lesion [Not Recovered/Not Resolved]
  - Tremor [Unknown]
  - Hypoaesthesia [Recovering/Resolving]
  - Fall [Recovering/Resolving]
  - Limb injury [Unknown]
  - Head injury [Recovering/Resolving]
  - Amnesia [Unknown]
  - Mobility decreased [Recovered/Resolved]
  - Muscular weakness [Recovered/Resolved]
  - Muscle rigidity [Recovered/Resolved]
  - Dysphonia [Recovered/Resolved]
  - Muscle spasms [Recovering/Resolving]
  - Pain [Recovered/Resolved]
  - Asthenia [Unknown]
  - Headache [Recovered/Resolved]
  - Product supply issue [Unknown]

NARRATIVE: CASE EVENT DATE: 20210904
